FAERS Safety Report 21314316 (Version 1)
Quarter: 2022Q3

REPORT INFORMATION
  Report Type: Spontaneous
  Country: US (occurrence: None)
  Receive Date: 20220909
  Receipt Date: 20220909
  Transmission Date: 20221027
  Serious: No
  Sender: FDA-Public Use
  Company Number: US-ARIS GLOBAL-202110-1776

PATIENT
  Sex: Female

DRUGS (12)
  1. OXERVATE [Suspect]
     Active Substance: CENEGERMIN-BKBJ
     Indication: Neurotrophic keratopathy
     Route: 047
     Dates: start: 20210921, end: 20211117
  2. OXERVATE [Suspect]
     Active Substance: CENEGERMIN-BKBJ
     Route: 047
     Dates: start: 20220316
  3. GATIFLOXACIN [Concomitant]
     Active Substance: GATIFLOXACIN
  4. RESTASIS [Concomitant]
     Active Substance: CYCLOSPORINE
     Dosage: DROPERETTE
  5. TIMOLOL MALEATE [Concomitant]
     Active Substance: TIMOLOL MALEATE
  6. ZIOPTAN [Concomitant]
     Active Substance: TAFLUPROST
     Dosage: DROPERETTE
  7. ALLEGRA ALLERGY [Concomitant]
     Active Substance: FEXOFENADINE HYDROCHLORIDE
  8. VITAMIN D3 [Concomitant]
     Active Substance: CHOLECALCIFEROL
  9. NORVASC [Concomitant]
     Active Substance: AMLODIPINE BESYLATE
  10. SYNTHROID [Concomitant]
     Active Substance: LEVOTHYROXINE SODIUM
  11. ELIQUIS [Concomitant]
     Active Substance: APIXABAN
  12. LOPRESSOR [Concomitant]
     Active Substance: METOPROLOL TARTRATE

REACTIONS (7)
  - Accidental overdose [Unknown]
  - Product use issue [Unknown]
  - Eye pain [Unknown]
  - Lacrimation increased [Unknown]
  - Blepharitis [Unknown]
  - Erythema of eyelid [Unknown]
  - Ocular hyperaemia [Unknown]
